FAERS Safety Report 6349581-1 (Version None)
Quarter: 2009Q3

REPORT INFORMATION
  Report Type: 
  Country: None (occurrence: None)
  Receive Date: 20090911
  Receipt Date: 20090831
  Transmission Date: 20100115
  Serious: Yes (Life-Threatening, Hospitalization, Other)
  Sender: FDA-Public Use
  Company Number: DE-PFIZER INC-2009262232

PATIENT
  Age: 66 Year

DRUGS (22)
  1. ANIDULAFUNGIN [Suspect]
     Indication: ASPERGILLOSIS
     Dosage: 200 MG, 1X/DAY
     Route: 042
     Dates: start: 20090825, end: 20090825
  2. ANIDULAFUNGIN [Suspect]
     Dosage: 100 MG, 1X/DAY
     Route: 042
     Dates: start: 20090826, end: 20090828
  3. VORICONAZOLE [Suspect]
     Indication: ASPERGILLOSIS
     Dosage: 4 MG/KG, 2X/DAY
     Route: 042
     Dates: start: 20090825, end: 20090829
  4. TIGECYCLINE [Suspect]
     Dosage: 100 MG, 1X/DAY
     Route: 042
     Dates: start: 20090826, end: 20090826
  5. TIGECYCLINE [Suspect]
     Dosage: 50 MG, 1X/DAY
     Route: 042
     Dates: start: 20090827, end: 20090829
  6. BETAISODONA [Concomitant]
     Dosage: UNK
     Route: 048
     Dates: start: 20090802
  7. AMPHOTERICIN B [Concomitant]
     Dosage: UNK
     Route: 048
     Dates: start: 20090802
  8. L-THYROXIN [Concomitant]
     Dosage: UNK
     Route: 048
     Dates: start: 20090802
  9. TAVANIC [Concomitant]
     Dosage: UNK
     Route: 048
     Dates: start: 20090802, end: 20090828
  10. RANITIDINE HCL [Concomitant]
     Dosage: UNK
     Route: 042
     Dates: start: 20090825, end: 20090830
  11. HEPARIN [Concomitant]
     Dosage: UNK
     Route: 042
     Dates: start: 20090808, end: 20090826
  12. PANTOZOL [Concomitant]
     Dosage: UNK
     Route: 048
     Dates: end: 20090824
  13. POTASSIUM CHLORIDE [Concomitant]
     Dosage: UNK
     Route: 042
     Dates: start: 20090825, end: 20090825
  14. MERONEM [Concomitant]
     Dosage: UNK
     Route: 042
     Dates: end: 20090826
  15. TARGOCID [Concomitant]
     Dosage: UNK
     Route: 042
     Dates: end: 20090826
  16. TARGOCID [Concomitant]
     Dosage: UNK
     Route: 042
     Dates: start: 20090829
  17. SPIRONOLACTONE [Concomitant]
     Dosage: UNK
     Route: 048
     Dates: start: 20090828, end: 20090828
  18. ZOFRAN [Concomitant]
     Dosage: UNK
     Route: 042
     Dates: start: 20090826, end: 20090831
  19. FORTUM [Concomitant]
     Dosage: UNK
     Route: 042
     Dates: start: 20090826
  20. KONAKION [Concomitant]
     Dosage: UNK
     Route: 042
     Dates: start: 20090828, end: 20090830
  21. ACICLOVIR [Concomitant]
     Dosage: UNK
     Route: 042
     Dates: start: 20090826, end: 20090828
  22. LASIX [Concomitant]
     Dosage: UNK
     Route: 042
     Dates: start: 20090829, end: 20090829

REACTIONS (4)
  - CATHETER RELATED INFECTION [None]
  - HEPATIC FAILURE [None]
  - RENAL FAILURE [None]
  - RESPIRATORY FAILURE [None]
